FAERS Safety Report 7109637-2 (Version None)
Quarter: 2010Q4

REPORT INFORMATION
  Report Type: 
  Country: None (occurrence: None)
  Receive Date: 20101115
  Receipt Date: 20101115
  Transmission Date: 20110411
  Serious: No
  Sender: FDA-Public Use
  Company Number: None

PATIENT
  Age: 61 Year
  Sex: Female
  Weight: 87.7 kg

DRUGS (1)
  1. TERBINAFINE HCL [Suspect]

REACTIONS (1)
  - AGEUSIA [None]
